FAERS Safety Report 12798091 (Version 1)
Quarter: 2016Q3

REPORT INFORMATION
  Report Type: Spontaneous
  Country: US (occurrence: US)
  Receive Date: 20160930
  Receipt Date: 20160930
  Transmission Date: 20161109
  Serious: Yes (Other)
  Sender: FDA-Public Use
  Company Number: None

PATIENT
  Age: 57 Year
  Sex: Female
  Weight: 61.74 kg

DRUGS (1)
  1. RESTASIS [Suspect]
     Active Substance: CYCLOSPORINE
     Indication: DRY EYE
     Route: 047
     Dates: start: 20160801, end: 20160926

REACTIONS (9)
  - Rash [None]
  - Alopecia [None]
  - Ear pruritus [None]
  - Ear pain [None]
  - Instillation site pain [None]
  - Instillation site paraesthesia [None]
  - Paraesthesia ear [None]
  - Instillation site pruritus [None]
  - Ear discomfort [None]

NARRATIVE: CASE EVENT DATE: 20160929
